FAERS Safety Report 7585376-9 (Version None)
Quarter: 2011Q3

REPORT INFORMATION
  Report Type: 
  Country: None (occurrence: None)
  Receive Date: 20110701
  Receipt Date: 20071220
  Transmission Date: 20111222
  Serious: Yes (Other)
  Sender: FDA-Public Use
  Company Number: US-BAYER-200716981NA

PATIENT
  Age: 43 Year
  Sex: Male
  Weight: 104 kg

DRUGS (22)
  1. TRASYLOL [Suspect]
     Dosage: 50 ML/HOUR INFUSION
     Route: 042
     Dates: start: 20061226, end: 20061226
  2. LIPITOR [Concomitant]
     Dosage: 40 MG, QD
     Route: 048
  3. HEPARIN [Concomitant]
     Dosage: 45000 U
     Route: 042
     Dates: start: 20061226, end: 20061226
  4. PERCOCET [Concomitant]
     Dosage: 10 MG
     Route: 048
     Dates: start: 20061201
  5. XANAX [Concomitant]
     Dosage: 1 MG
     Route: 048
     Dates: start: 20010101, end: 20060101
  6. ANCEF [Concomitant]
     Dosage: 1 G
     Route: 042
     Dates: start: 20061226, end: 20061226
  7. INSULIN [Concomitant]
     Dosage: TITRATED DRIP
     Route: 042
     Dates: start: 20061226
  8. PROPOFOL [Concomitant]
     Dosage: TITRATED DRIP
     Route: 042
     Dates: start: 20061226
  9. TOPROL-XL [Concomitant]
     Dosage: 100
     Route: 048
     Dates: start: 20021001
  10. PHENYLEPHRINE HCL [Concomitant]
     Dosage: TITRATED DRIP
     Route: 042
     Dates: start: 20061226, end: 20061226
  11. MANNITOL [Concomitant]
     Dosage: 25 G
     Route: 042
     Dates: start: 20061226
  12. OMNIPAQUE 140 [Concomitant]
     Indication: CATHETERISATION CARDIAC
     Dosage: 100 ML
     Dates: start: 20061221
  13. DIOVAN [Concomitant]
     Dosage: 160/25
     Route: 048
     Dates: start: 20021001
  14. LEVOPHED [Concomitant]
     Dosage: TITRATED DRIP
     Route: 042
     Dates: start: 20061226, end: 20061226
  15. TRASYLOL [Suspect]
     Dosage: 200 ML LOADING DOSE
     Route: 042
     Dates: start: 20061226, end: 20061226
  16. ACETYLSALICYLIC ACID SRT [Concomitant]
     Dosage: 81 MG, QD
     Route: 048
  17. PROTAMINE SULFATE [Concomitant]
     Dosage: 395 MG
     Route: 042
     Dates: start: 20061226, end: 20061226
  18. ALBUMIN (HUMAN) [Concomitant]
     Dosage: 12.5
     Route: 042
     Dates: start: 20061226
  19. TRASYLOL [Suspect]
     Indication: CORONARY ARTERY BYPASS
     Dosage: 1 ML, ONCE, INITIAL TEST DOSE
     Route: 042
     Dates: start: 20061226, end: 20061226
  20. NEXIUM [Concomitant]
     Dosage: 40 MG, QD
     Route: 048
     Dates: start: 20061101
  21. PLAVIX [Concomitant]
     Dosage: 75 MG, QD
     Route: 048
  22. CEFAZOLIN [Concomitant]
     Dosage: 2 G
     Route: 042
     Dates: start: 20061226, end: 20061226

REACTIONS (8)
  - ANXIETY [None]
  - FEAR [None]
  - INJURY [None]
  - UNEVALUABLE EVENT [None]
  - PAIN [None]
  - DEPRESSION [None]
  - RENAL FAILURE [None]
  - ANHEDONIA [None]
